FAERS Safety Report 20687490 (Version 12)
Quarter: 2022Q4

REPORT INFORMATION
  Report Type: Spontaneous
  Country: CA (occurrence: CA)
  Receive Date: 20220408
  Receipt Date: 20221221
  Transmission Date: 20230113
  Serious: Yes (Other)
  Sender: FDA-Public Use
  Company Number: CA-CELLTRION INC.-2021CA013042

PATIENT

DRUGS (17)
  1. INFLECTRA [Suspect]
     Active Substance: INFLIXIMAB-DYYB
     Indication: Colitis ulcerative
     Dosage: 700 MG WEEK 2 THEN DECREASE TO 400MG WEEK 6 THEN Q 8 WEEKS
     Route: 042
     Dates: start: 20210826, end: 20210909
  2. INFLECTRA [Suspect]
     Active Substance: INFLIXIMAB-DYYB
     Dosage: 700 MG, 1 DF, 700MG WEEK 2 DOSE, 400MG WEEK 6 DOSE, THEN Q 8 (RECEIVED IN HOSPITAL ON 26AUG2021)
     Route: 042
     Dates: start: 20210826, end: 20210909
  3. INFLECTRA [Suspect]
     Active Substance: INFLIXIMAB-DYYB
     Dosage: 5 MG/KG 0, 2, 6, THEN EVERY 8 WEEKS
     Route: 042
     Dates: start: 20210826, end: 20210909
  4. INFLECTRA [Suspect]
     Active Substance: INFLIXIMAB-DYYB
     Dosage: 700 MG WEEK 2 THEN DECREASE TO 400MG WEEK 6 THEN Q 8 WEEKS
     Route: 042
     Dates: start: 20210909
  5. INFLECTRA [Suspect]
     Active Substance: INFLIXIMAB-DYYB
     Dosage: 700 MG WEEK 2 THEN DECREASE TO 400MG, WEEK 6 THEN Q 8 WEEKS
     Route: 042
     Dates: start: 20220405
  6. INFLECTRA [Suspect]
     Active Substance: INFLIXIMAB-DYYB
     Dosage: 5 MG/KG  EVERY 0-2-6 AND THEN Q 8 WEEKS
     Route: 042
     Dates: start: 20220405, end: 20220711
  7. INFLECTRA [Suspect]
     Active Substance: INFLIXIMAB-DYYB
     Dosage: 5 MG/KG  WEEK 0-2-6 AND THEN Q 8 WEEKS
     Route: 042
     Dates: start: 20220418
  8. INFLECTRA [Suspect]
     Active Substance: INFLIXIMAB-DYYB
     Dosage: 5 MG/KG  WEEK 0-2-6 AND THEN Q 8 WEEKS
     Route: 042
     Dates: start: 20220516
  9. INFLECTRA [Suspect]
     Active Substance: INFLIXIMAB-DYYB
     Dosage: 5 MG/KG  WEEK 0-2-6 AND THEN Q 8 WEEKS
     Route: 042
     Dates: start: 20220711
  10. INFLECTRA [Suspect]
     Active Substance: INFLIXIMAB-DYYB
     Dosage: 7.5 MG/KG, EVERY 4 WEEKS(NOT YET STARTED)
     Route: 042
  11. INFLECTRA [Suspect]
     Active Substance: INFLIXIMAB-DYYB
     Dosage: 500 MG, SUPPOSED TO RECEIVE 7.5 MG/KG, EVERY 4 WEEKS
     Route: 042
     Dates: start: 20220815
  12. INFLECTRA [Suspect]
     Active Substance: INFLIXIMAB-DYYB
     Dosage: 7.5 MG/KG, EVERY 4 WEEKS
     Route: 042
     Dates: start: 20220913
  13. INFLECTRA [Suspect]
     Active Substance: INFLIXIMAB-DYYB
     Dosage: 7.5 MG/KG, EVERY 4 WEEKS
     Route: 042
     Dates: start: 20221011
  14. INFLECTRA [Suspect]
     Active Substance: INFLIXIMAB-DYYB
     Dosage: 7.5 MG/KG, EVERY 4 WEEKS
     Route: 042
     Dates: start: 20221110
  15. INFLECTRA [Suspect]
     Active Substance: INFLIXIMAB-DYYB
     Dosage: 7.5 MG/KG, EVERY 4 WEEKS
     Route: 042
     Dates: start: 20221212
  16. AZATHIOPRINE [Concomitant]
     Active Substance: AZATHIOPRINE
     Dosage: 1 DF
     Dates: start: 20220325
  17. PREDNISONE [Concomitant]
     Active Substance: PREDNISONE
     Dosage: 1 DF, DOSAGE NOT AVAILABLE
     Route: 065

REACTIONS (15)
  - Pyoderma gangrenosum [Not Recovered/Not Resolved]
  - Colectomy [Recovered/Resolved]
  - Stoma creation [Unknown]
  - Condition aggravated [Recovering/Resolving]
  - Off label use [Unknown]
  - Incorrect dose administered [Unknown]
  - Headache [Not Recovered/Not Resolved]
  - Fatigue [Unknown]
  - Oral herpes [Recovering/Resolving]
  - Weight decreased [Recovering/Resolving]
  - Rhinorrhoea [Recovering/Resolving]
  - Cough [Recovering/Resolving]
  - Nasopharyngitis [Not Recovered/Not Resolved]
  - Illness [Unknown]
  - Cough [Recovering/Resolving]

NARRATIVE: CASE EVENT DATE: 20210901
